FAERS Safety Report 4812249-4 (Version None)
Quarter: 2005Q4

REPORT INFORMATION
  Report Type: 
  Country: None (occurrence: None)
  Receive Date: 20051028
  Receipt Date: 20040924
  Transmission Date: 20060501
  Serious: No
  Sender: FDA-Public Use
  Company Number: US-GLAXOSMITHKLINE-A0527378A

PATIENT
  Age: 71 Year
  Sex: Male

DRUGS (9)
  1. ADVAIR DISKUS 100/50 [Suspect]
     Indication: CHRONIC OBSTRUCTIVE PULMONARY DISEASE
     Dosage: 1PUFF TWICE PER DAY
     Route: 055
  2. PREVACID [Concomitant]
  3. ATIVAN [Concomitant]
  4. VENTOLIN [Concomitant]
  5. CARDURA [Concomitant]
  6. SINGULAIR [Concomitant]
  7. ZOCOR [Concomitant]
  8. AMBIEN [Concomitant]
  9. UNKNOWN MEDICATION [Concomitant]

REACTIONS (1)
  - MOUTH ULCERATION [None]
